FAERS Safety Report 11365115 (Version 1)
Quarter: 2015Q3

REPORT INFORMATION
  Report Type: Spontaneous
  Country: US (occurrence: US)
  Receive Date: 20150811
  Receipt Date: 20150811
  Transmission Date: 20151125
  Serious: Yes (Hospitalization, Congenital Anomaly, Other)
  Sender: FDA-Public Use
  Company Number: US-RB PHARMACEUTICALS LIMITED-RB-081898-2015

PATIENT
  Sex: Male
  Weight: 3.18 kg

DRUGS (5)
  1. KLONOPIN [Suspect]
     Active Substance: CLONAZEPAM
     Indication: ANXIETY
     Dosage: UNK DAILY
     Route: 064
     Dates: end: 20100727
  2. ABILIFY [Suspect]
     Active Substance: ARIPIPRAZOLE
     Indication: PRODUCT USED FOR UNKNOWN INDICATION
     Dosage: UNK DAILY
     Route: 064
     Dates: end: 20100727
  3. SUBOXONE [Suspect]
     Active Substance: BUPRENORPHINE HYDROCHLORIDE\NALOXONE HYDROCHLORIDE
     Indication: DRUG DEPENDENCE
     Dosage: 12 MG TWICE DAILY
     Route: 064
     Dates: start: 2009, end: 2010
  4. BUPRENORPHINE GENERIC TAB [Suspect]
     Active Substance: BUPRENORPHINE
     Indication: DRUG DEPENDENCE
     Dosage: 12 MG TWICE DAILY
     Route: 064
     Dates: start: 2010, end: 20100727
  5. ZOLOFT [Suspect]
     Active Substance: SERTRALINE HYDROCHLORIDE
     Indication: DEPRESSION
     Dosage: UNK DAILY
     Route: 064
     Dates: end: 20100727

REACTIONS (7)
  - Weight fluctuation [Recovered/Resolved]
  - Foetal exposure during pregnancy [Recovered/Resolved]
  - Aggression [Unknown]
  - Slow speech [Unknown]
  - Drug withdrawal syndrome neonatal [Recovered/Resolved]
  - Head banging [Unknown]
  - Ankyloglossia congenital [Recovered/Resolved]

NARRATIVE: CASE EVENT DATE: 2009
